FAERS Safety Report 24139932 (Version 1)
Quarter: 2024Q3

REPORT INFORMATION
  Report Type: Spontaneous
  Country: US (occurrence: US)
  Receive Date: 20240726
  Receipt Date: 20240726
  Transmission Date: 20241016
  Serious: No
  Sender: GLAND PHARMA
  Company Number: US-GLANDPHARMA-US-2024GLNSPO00477

PATIENT

DRUGS (1)
  1. CYANOCOBALAMIN [Suspect]
     Active Substance: CYANOCOBALAMIN
     Indication: Product used for unknown indication
     Dosage: 1000 MCG/ML
     Route: 065
     Dates: start: 20240603

REACTIONS (1)
  - Expired product administered [Unknown]
